FAERS Safety Report 16189372 (Version 1)
Quarter: 2019Q2

REPORT INFORMATION
  Report Type: Spontaneous
  Country: US (occurrence: US)
  Receive Date: 20190411
  Receipt Date: 20190411
  Transmission Date: 20190711
  Serious: Yes (Hospitalization)
  Sender: FDA-Public Use
  Company Number: None

PATIENT
  Sex: Female

DRUGS (11)
  1. ENBREL [Suspect]
     Active Substance: ETANERCEPT
     Indication: RHEUMATOID ARTHRITIS
     Dosage: ?          OTHER FREQUENCY:EVERY WEEK;?
     Route: 058
  2. ADVAIR DISKU AER 250/50 [Concomitant]
  3. HYDROMORPHON TAB 2MG [Concomitant]
  4. TRIAMT/HCTZ TAB 37.5-25 [Concomitant]
  5. FENTANYL TRANSDERMAL SYSTEM [Concomitant]
     Active Substance: FENTANYL
  6. MONTELUKAST [Concomitant]
     Active Substance: MONTELUKAST SODIUM
  7. DICLOFENAC GEL 1% [Concomitant]
     Active Substance: DICLOFENAC
  8. SERTRALINE [Concomitant]
     Active Substance: SERTRALINE HYDROCHLORIDE
  9. TRAZODONE TAB 100MG [Concomitant]
  10. LEVOTHYROXIN TAB 88MCG [Concomitant]
  11. TOPIRAMTE TAB 50MG [Concomitant]

REACTIONS (1)
  - Hospitalisation [None]
